FAERS Safety Report 9910113 (Version 1)
Quarter: 2014Q1

REPORT INFORMATION
  Report Type: Spontaneous
  Country: US (occurrence: None)
  Receive Date: 20140218
  Receipt Date: 20140218
  Transmission Date: 20141002
  Serious: Yes (Disabling)
  Sender: FDA-Public Use
  Company Number: None

PATIENT
  Age: 46 Year
  Sex: Male
  Weight: 69.85 kg

DRUGS (1)
  1. PROPECIA 1MG MERCK [Suspect]
     Indication: ANDROGENETIC ALOPECIA
     Dosage: 1 PILL  ONCE DAILY TAKEN BY MOUTH
     Route: 048
     Dates: start: 20100201, end: 20130201

REACTIONS (2)
  - Sexual dysfunction [None]
  - Orgasm abnormal [None]
